FAERS Safety Report 17134742 (Version 1)
Quarter: 2019Q4

REPORT INFORMATION
  Report Type: Spontaneous
  Country: IN (occurrence: IN)
  Receive Date: 20191210
  Receipt Date: 20191210
  Transmission Date: 20200122
  Serious: Yes (Death)
  Sender: FDA-Public Use
  Company Number: IN-PFIZER INC-2018299558

PATIENT
  Age: 68 Year
  Sex: Male

DRUGS (2)
  1. CRIZALK [Suspect]
     Active Substance: CRIZOTINIB
     Dosage: 250 MG, 1X/DAY
     Route: 048
     Dates: end: 20191013
  2. CRIZALK [Suspect]
     Active Substance: CRIZOTINIB
     Indication: ALK GENE REARRANGEMENT POSITIVE
     Dosage: 250 MG, 2X/DAY
     Route: 048
     Dates: start: 20170405

REACTIONS (1)
  - Death [Fatal]

NARRATIVE: CASE EVENT DATE: 20191013
